FAERS Safety Report 11489686 (Version 1)
Quarter: 2015Q3

REPORT INFORMATION
  Report Type: Report from Study
  Country: US (occurrence: US)
  Receive Date: 20150910
  Receipt Date: 20150910
  Transmission Date: 20151125
  Serious: No
  Sender: FDA-Public Use
  Company Number: US-AMGEN-USASP2015089839

PATIENT
  Age: 53 Year

DRUGS (1)
  1. ENBREL [Suspect]
     Active Substance: ETANERCEPT
     Indication: RHEUMATOID ARTHRITIS
     Dosage: UNK UNK, QWK
     Route: 065
     Dates: start: 2013

REACTIONS (12)
  - Neck pain [Unknown]
  - Mobility decreased [Unknown]
  - Joint swelling [Unknown]
  - Lymphadenopathy [Unknown]
  - Arthralgia [Unknown]
  - Gait disturbance [Unknown]
  - Tinnitus [Unknown]
  - Myalgia [Unknown]
  - Anxiety [Unknown]
  - Back pain [Unknown]
  - Visual impairment [Unknown]
  - Musculoskeletal stiffness [Unknown]
